FAERS Safety Report 9493207 (Version 1)
Quarter: 2013Q3

REPORT INFORMATION
  Report Type: Spontaneous
  Country: IT (occurrence: IT)
  Receive Date: 20130902
  Receipt Date: 20130902
  Transmission Date: 20140515
  Serious: Yes (Other)
  Sender: FDA-Public Use
  Company Number: IT-ABBOTT-13X-083-1140214-00

PATIENT
  Age: 59 Year
  Sex: Female

DRUGS (4)
  1. RYTMONORM SR [Suspect]
     Indication: ATRIAL FIBRILLATION
     Route: 048
     Dates: start: 20130203, end: 20130729
  2. TRIATEC HCT [Concomitant]
     Indication: PRODUCT USED FOR UNKNOWN INDICATION
     Dosage: FORM STRENGTH:  5 MG + 25 MG
  3. COUMADIN [Concomitant]
     Indication: PRODUCT USED FOR UNKNOWN INDICATION
  4. ZYLORIC [Concomitant]
     Indication: PRODUCT USED FOR UNKNOWN INDICATION

REACTIONS (1)
  - Atrioventricular block first degree [Not Recovered/Not Resolved]
